FAERS Safety Report 5894321-3 (Version None)
Quarter: 2008Q3

REPORT INFORMATION
  Report Type: 
  Country: None (occurrence: None)
  Receive Date: 20080922
  Receipt Date: 20080912
  Transmission Date: 20090109
  Serious: Yes (Hospitalization)
  Sender: FDA-Public Use
  Company Number: 2008SP005495

PATIENT
  Age: 57 Year
  Sex: Male
  Weight: 95.2554 kg

DRUGS (13)
  1. PEG-INTRON [Suspect]
     Indication: HEPATITIS C
     Dates: start: 20070406, end: 20080229
  2. RIBAVIRIN [Suspect]
     Indication: HEPATITIS C
     Dosage: PO
     Route: 048
     Dates: start: 20070406, end: 20080229
  3. METOPROLOL TARTRATE [Concomitant]
  4. PRILOSEC [Concomitant]
  5. LASIX [Concomitant]
  6. BACTRIM DS [Concomitant]
  7. PROCRIT [Concomitant]
  8. NEUPOGEN [Concomitant]
  9. FERROUS SULFATE [Concomitant]
  10. LOMOTIL [Concomitant]
  11. FISH OIL [Concomitant]
  12. PROGRAF [Suspect]
     Indication: IMMUNOSUPPRESSION
     Dosage: 2 MG;QAM;PO,1 MG;QPM;PO
     Route: 048
     Dates: start: 20070126
  13. PROGRAF [Suspect]
     Indication: IMMUNOSUPPRESSION
     Dosage: 2 MG;QAM;PO,1 MG;QPM;PO
     Route: 048
     Dates: start: 20070126

REACTIONS (11)
  - CHROMATURIA [None]
  - DECREASED APPETITE [None]
  - DIARRHOEA [None]
  - DISEASE RECURRENCE [None]
  - FAECES DISCOLOURED [None]
  - HEPATIC FAILURE [None]
  - HEPATITIS C VIRUS TEST [None]
  - HYPERKALAEMIA [None]
  - LIVER PALPABLE SUBCOSTAL [None]
  - RENAL IMPAIRMENT [None]
  - TRANSPLANT REJECTION [None]
